FAERS Safety Report 6920288-2 (Version None)
Quarter: 2010Q3

REPORT INFORMATION
  Report Type: 
  Country: None (occurrence: None)
  Receive Date: 20100809
  Receipt Date: 20100726
  Transmission Date: 20110219
  Serious: Yes (Hospitalization)
  Sender: FDA-Public Use
  Company Number: 7012138

PATIENT
  Age: 50 Year
  Sex: Male

DRUGS (2)
  1. REBIF [Suspect]
     Indication: PRODUCT USED FOR UNKNOWN INDICATION
     Dosage: SUBCUTANEOUS
     Route: 058
     Dates: start: 20100505, end: 20100701
  2. UNSPECIFIED PILLS (ALL OTHER THERAPEUTIC PRODUCTS) [Suspect]

REACTIONS (2)
  - PAIN IN EXTREMITY [None]
  - VOMITING [None]
